FAERS Safety Report 4793871-0 (Version None)
Quarter: 2005Q4

REPORT INFORMATION
  Report Type: 
  Country: None (occurrence: None)
  Receive Date: 20051011
  Receipt Date: 20050929
  Transmission Date: 20060501
  Serious: Yes (Other)
  Sender: FDA-Public Use
  Company Number: 2005UW14661

PATIENT
  Age: 12 Year
  Sex: Female

DRUGS (2)
  1. TOPROL-XL [Suspect]
     Route: 048
  2. TOPROL-XL [Suspect]
     Route: 048

REACTIONS (7)
  - CHEST PAIN [None]
  - CYANOSIS [None]
  - DIZZINESS [None]
  - DRUG DISPENSING ERROR [None]
  - DYSPNOEA [None]
  - HEADACHE [None]
  - MEDICATION ERROR [None]
